FAERS Safety Report 7631797-5 (Version None)
Quarter: 2011Q3

REPORT INFORMATION
  Report Type: 
  Country: None (occurrence: None)
  Receive Date: 20110725
  Receipt Date: 20110325
  Transmission Date: 20111222
  Serious: No
  Sender: FDA-Public Use
  Company Number: US-BRISTOL-MYERS SQUIBB COMPANY-15637119

PATIENT
  Sex: Male

DRUGS (2)
  1. WARFARIN SODIUM [Suspect]
  2. FIXODENT [Concomitant]

REACTIONS (1)
  - CHAPPED LIPS [None]
